FAERS Safety Report 4875045-8 (Version None)
Quarter: 2006Q1

REPORT INFORMATION
  Report Type: 
  Country: None (occurrence: None)
  Receive Date: 20060109
  Receipt Date: 20060102
  Transmission Date: 20060701
  Serious: Yes (Hospitalization)
  Sender: FDA-Public Use
  Company Number: FR-JNJFOC-20060100071

PATIENT
  Age: 52 Year
  Sex: Male

DRUGS (12)
  1. DURAGESIC-100 [Suspect]
     Indication: DRUG USE FOR UNKNOWN INDICATION
     Route: 062
  2. PROCAINE CHLORHYDRATE [Suspect]
     Indication: DRUG USE FOR UNKNOWN INDICATION
     Route: 048
  3. CARBOPLATINE [Concomitant]
     Dosage: 7 CYCLES TWICE WEEKLY.
     Route: 065
  4. BICARBONATE [Concomitant]
     Indication: DRUG USE FOR UNKNOWN INDICATION
     Route: 048
  5. FUNGIZONE [Concomitant]
     Route: 065
  6. SOLU-MEDROL [Concomitant]
     Route: 065
  7. KABIVEN [Concomitant]
     Route: 065
  8. SOLU-MEDROL [Concomitant]
     Route: 065
  9. PRIMPERAN INJ [Concomitant]
     Route: 065
  10. AUGMENTIN '125' [Concomitant]
     Route: 065
  11. AUGMENTIN '125' [Concomitant]
     Route: 065
  12. INNOHEP [Concomitant]
     Indication: DRUG USE FOR UNKNOWN INDICATION
     Route: 048

REACTIONS (4)
  - ANAEMIA [None]
  - LUNG DISORDER [None]
  - SEPTIC SHOCK [None]
  - THROMBOCYTOPENIA [None]
